FAERS Safety Report 18639240 (Version 1)
Quarter: 2020Q4

REPORT INFORMATION
  Report Type: Spontaneous
  Country: GB (occurrence: GB)
  Receive Date: 20201219
  Receipt Date: 20201219
  Transmission Date: 20210114
  Serious: Yes (Life-Threatening, Disabling, Other)
  Sender: FDA-Public Use
  Company Number: GB-009507513-2012GBR008292

PATIENT
  Age: 34 Year
  Sex: Female

DRUGS (3)
  1. MIRTAZAPINE. [Concomitant]
     Active Substance: MIRTAZAPINE
     Dosage: UNK
  2. SERTRALINE HYDROCHLORIDE. [Concomitant]
     Active Substance: SERTRALINE HYDROCHLORIDE
     Dosage: UNK
  3. IMPLANON [Suspect]
     Active Substance: ETONOGESTREL
     Indication: CONTRACEPTIVE IMPLANT
     Dosage: UNK
     Dates: start: 20140829

REACTIONS (9)
  - Anger [Recovering/Resolving]
  - Panic attack [Unknown]
  - Amenorrhoea [Not Recovered/Not Resolved]
  - Suicidal ideation [Recovering/Resolving]
  - Anxiety [Recovering/Resolving]
  - Depression suicidal [Recovering/Resolving]
  - Mood swings [Recovering/Resolving]
  - Abnormal weight gain [Not Recovered/Not Resolved]
  - Feelings of worthlessness [Unknown]
